FAERS Safety Report 11935771 (Version 1)
Quarter: 2016Q1

REPORT INFORMATION
  Report Type: Spontaneous
  Country: US (occurrence: US)
  Receive Date: 20160121
  Receipt Date: 20160121
  Transmission Date: 20160526
  Serious: No
  Sender: FDA-Public Use
  Company Number: US-OTSUKA-2015_014683

PATIENT
  Age: 60 Year
  Sex: Female

DRUGS (3)
  1. *VENLAFAXINE XR [Concomitant]
     Indication: MAJOR DEPRESSION
     Dosage: 225 MG, QD
     Route: 048
  2. CHLORDIAZEPOXIDE [Concomitant]
     Active Substance: CHLORDIAZEPOXIDE
     Indication: ANXIETY
     Dosage: 25 MG, AS NEEDED
     Route: 065
  3. REXULTI [Suspect]
     Active Substance: BREXPIPRAZOLE
     Indication: MAJOR DEPRESSION
     Dosage: 1 MG, QD (SPLIT 4 MG TABLET)
     Route: 048
     Dates: start: 20151112

REACTIONS (2)
  - Wrong technique in product usage process [Unknown]
  - Drug prescribing error [Unknown]
